FAERS Safety Report 5846612-X (Version None)
Quarter: 2008Q3

REPORT INFORMATION
  Report Type: 
  Country: None (occurrence: None)
  Receive Date: 20080815
  Receipt Date: 20080806
  Transmission Date: 20090109
  Serious: Yes (Hospitalization, Other)
  Sender: FDA-Public Use
  Company Number: CO-JNJFOC-20080801440

PATIENT
  Age: 19 Year
  Sex: Female

DRUGS (3)
  1. REMICADE [Suspect]
     Indication: JUVENILE ARTHRITIS
     Route: 042
  2. LEFLUNOMIDE [Concomitant]
     Indication: JUVENILE ARTHRITIS
  3. NAPROXEN [Concomitant]
     Indication: JUVENILE ARTHRITIS

REACTIONS (1)
  - DISSEMINATED TUBERCULOSIS [None]
